FAERS Safety Report 18018713 (Version 1)
Quarter: 2020Q3

REPORT INFORMATION
  Report Type: Spontaneous
  Country: US (occurrence: US)
  Receive Date: 20200713
  Receipt Date: 20200713
  Transmission Date: 20201103
  Serious: Yes (Disabling)
  Sender: FDA-Public Use
  Company Number: None

PATIENT
  Age: 69 Year
  Sex: Female
  Weight: 38.25 kg

DRUGS (13)
  1. RALOXIFEN [Concomitant]
     Active Substance: RALOXIFENE
  2. CITRACAL [Concomitant]
     Active Substance: CALCIUM CITRATE
  3. ATENOLOL. [Concomitant]
     Active Substance: ATENOLOL
  4. TRAZODONE [Concomitant]
     Active Substance: TRAZODONE HYDROCHLORIDE
  5. TRAMADOL. [Concomitant]
     Active Substance: TRAMADOL
  6. RESTASIS [Concomitant]
     Active Substance: CYCLOSPORINE
  7. OCRELIZUMAB. [Suspect]
     Active Substance: OCRELIZUMAB
     Indication: MULTIPLE SCLEROSIS
     Dosage: ?          QUANTITY:800 MG;OTHER FREQUENCY:EVERY 6 MONTHS;?
     Route: 042
     Dates: start: 20180710, end: 20200707
  8. LYRICA [Concomitant]
     Active Substance: PREGABALIN
  9. BENADRYL [Suspect]
     Active Substance: DIPHENHYDRAMINE HYDROCHLORIDE
  10. ESTRADIOL. [Concomitant]
     Active Substance: ESTRADIOL
  11. MULTI VITS [Concomitant]
     Active Substance: VITAMINS
  12. VITAMIN C [Concomitant]
     Active Substance: ASCORBIC ACID
  13. BACLOFEN. [Concomitant]
     Active Substance: BACLOFEN

REACTIONS (1)
  - Vertigo [None]

NARRATIVE: CASE EVENT DATE: 20200708
